FAERS Safety Report 7019573-8 (Version None)
Quarter: 2010Q3

REPORT INFORMATION
  Report Type: 
  Country: None (occurrence: None)
  Receive Date: 20100928
  Receipt Date: 20100928
  Transmission Date: 20110219
  Serious: No
  Sender: FDA-Public Use
  Company Number: None

PATIENT
  Sex: Female
  Weight: 45.3597 kg

DRUGS (2)
  1. ZEGERID [Suspect]
     Indication: GASTRITIS
     Dosage: ONE PILL ONCE A DAY PO
     Route: 048
     Dates: start: 20080801, end: 20081231
  2. ZEGERID [Suspect]
     Indication: GASTRITIS
     Dosage: ONE PILL ONCE AA DAY PO
     Route: 048
     Dates: start: 20080501, end: 20080801

REACTIONS (15)
  - ABDOMINAL PAIN UPPER [None]
  - DECREASED APPETITE [None]
  - DIZZINESS [None]
  - DRUG EFFECT PROLONGED [None]
  - DYSPEPSIA [None]
  - EARLY SATIETY [None]
  - FATIGUE [None]
  - GASTROOESOPHAGEAL REFLUX DISEASE [None]
  - IMPAIRED WORK ABILITY [None]
  - INFLUENZA LIKE ILLNESS [None]
  - IRRITABLE BOWEL SYNDROME [None]
  - MALAISE [None]
  - SALIVARY HYPERSECRETION [None]
  - SOCIAL PROBLEM [None]
  - WEIGHT DECREASED [None]
